FAERS Safety Report 5944361-0 (Version None)
Quarter: 2008Q4

REPORT INFORMATION
  Report Type: 
  Country: None (occurrence: None)
  Receive Date: 20081106
  Receipt Date: 20081106
  Transmission Date: 20090506
  Serious: Yes (Hospitalization)
  Sender: FDA-Public Use
  Company Number: None

PATIENT
  Age: 53 Year
  Sex: Female

DRUGS (1)
  1. IBUPROFEN TABLETS [Suspect]
     Indication: HEADACHE
     Dosage: PO
     Route: 048

REACTIONS (8)
  - ABDOMINAL PAIN [None]
  - DIZZINESS [None]
  - GASTRITIS EROSIVE [None]
  - HAEMOGLOBIN DECREASED [None]
  - MELAENA [None]
  - NAUSEA [None]
  - OCCULT BLOOD POSITIVE [None]
  - PRESYNCOPE [None]
